FAERS Safety Report 14901262 (Version 1)
Quarter: 2018Q2

REPORT INFORMATION
  Report Type: Spontaneous
  Country: ZA (occurrence: ZA)
  Receive Date: 20180516
  Receipt Date: 20180516
  Transmission Date: 20180711
  Serious: Yes (Hospitalization)
  Sender: FDA-Public Use
  Company Number: ZA-PFIZER INC-2018193923

PATIENT
  Age: 66 Year
  Sex: Female

DRUGS (11)
  1. ESTRADIOL. [Suspect]
     Active Substance: ESTRADIOL
     Dosage: 75 UG, UNK
  2. AVAMYS [Suspect]
     Active Substance: FLUTICASONE FUROATE
     Dosage: 27 UG, UNK
  3. SYMBICORD [Suspect]
     Active Substance: BUDESONIDE\FORMOTEROL
     Dosage: 160 UG, UNK
  4. ARCOXIA [Suspect]
     Active Substance: ETORICOXIB
     Dosage: 90 MG, UNK
  5. TRAMAHEXAL [Suspect]
     Active Substance: TRAMADOL HYDROCHLORIDE
     Dosage: 50 MG, UNK
  6. VITAMIN D /00107901/ [Suspect]
     Active Substance: ERGOCALCIFEROL
     Dosage: 1000 IU, UNK
  7. NOOTROPIL [Suspect]
     Active Substance: PIRACETAM
     Dosage: 400 MG, UNK
  8. EUTHYROX [Suspect]
     Active Substance: LEVOTHYROXINE SODIUM
     Dosage: 75 UG, UNK
  9. CIRCADIN [Suspect]
     Active Substance: MELATONIN
     Dosage: 2 MG, UNK
  10. LYRICA [Suspect]
     Active Substance: PREGABALIN
     Dosage: 25 MG, UNK
  11. RETIN-A [Suspect]
     Active Substance: TRETINOIN
     Dosage: 0.5 MG, UNK

REACTIONS (3)
  - Lower limb fracture [Unknown]
  - Hip fracture [Unknown]
  - Fall [Unknown]
